FAERS Safety Report 8418024 (Version 4)
Quarter: 2022Q3

REPORT INFORMATION
  Report Type: Spontaneous
  Country: US (occurrence: US)
  Receive Date: 20120221
  Receipt Date: 20220708
  Transmission Date: 20221027
  Serious: Yes (Hospitalization, Other)
  Sender: FDA-Public Use
  Company Number: US-JNJFOC-20120206019

PATIENT
  Age: 27 Year
  Sex: Female

DRUGS (4)
  1. RISPERIDONE [Suspect]
     Active Substance: RISPERIDONE
     Indication: Schizoaffective disorder
     Route: 048
  2. RISPERDAL M-TAB [Suspect]
     Active Substance: RISPERIDONE
     Indication: Schizoaffective disorder
     Route: 048
     Dates: end: 201103
  3. RISPERDAL M-TAB [Suspect]
     Active Substance: RISPERIDONE
     Route: 048
     Dates: start: 201103, end: 201103
  4. LITHIUM [Concomitant]
     Active Substance: LITHIUM
     Indication: Schizoaffective disorder
     Route: 065

REACTIONS (14)
  - Post-traumatic stress disorder [Recovered/Resolved]
  - Respiratory disorder [Unknown]
  - Premenstrual dysphoric disorder [Not Recovered/Not Resolved]
  - Delusion [Unknown]
  - Hospitalisation [Unknown]
  - Overdose [Unknown]
  - Syncope [Unknown]
  - Psychotic disorder [Recovered/Resolved]
  - Mobility decreased [Unknown]
  - Drug hypersensitivity [Unknown]
  - Adverse event [Unknown]
  - Dizziness [Recovered/Resolved]
  - Fall [Unknown]
  - Therapy cessation [Unknown]

NARRATIVE: CASE EVENT DATE: 20110301
